FAERS Safety Report 6038844-5 (Version None)
Quarter: 2009Q1

REPORT INFORMATION
  Report Type: 
  Country: None (occurrence: None)
  Receive Date: 20090114
  Receipt Date: 20090114
  Transmission Date: 20090719
  Serious: Yes (Life-Threatening, Hospitalization, Other)
  Sender: FDA-Public Use
  Company Number: None

PATIENT
  Sex: Male
  Weight: 99.7913 kg

DRUGS (2)
  1. EFFEXOR [Suspect]
     Indication: DEPRESSION
  2. BUSPAR [Suspect]
     Indication: ANXIETY

REACTIONS (23)
  - ANAEMIA [None]
  - BACK PAIN [None]
  - BLOOD GASES ABNORMAL [None]
  - BLOOD PRESSURE DECREASED [None]
  - BODY TEMPERATURE INCREASED [None]
  - DRUG ADMINISTRATION ERROR [None]
  - DRUG WITHDRAWAL SYNDROME [None]
  - HEADACHE [None]
  - HEART RATE INCREASED [None]
  - HYPERHIDROSIS [None]
  - IRRITABILITY [None]
  - MEMORY IMPAIRMENT [None]
  - MENTAL STATUS CHANGES [None]
  - NECK PAIN [None]
  - PANIC ATTACK [None]
  - PERIPHERAL ARTERY ANEURYSM [None]
  - POST PROCEDURAL COMPLICATION [None]
  - RENAL HAEMORRHAGE [None]
  - RETROPERITONEAL HAEMORRHAGE [None]
  - SCROTAL HAEMATOCOELE [None]
  - TREMOR [None]
  - TROPONIN INCREASED [None]
  - VISION BLURRED [None]
